FAERS Safety Report 16736888 (Version 1)
Quarter: 2019Q3

REPORT INFORMATION
  Report Type: Spontaneous
  Country: US (occurrence: US)
  Receive Date: 20190823
  Receipt Date: 20190823
  Transmission Date: 20191005
  Serious: No
  Sender: FDA-Public Use
  Company Number: US-BAYER-2019-147891

PATIENT
  Age: 15 Year
  Sex: Female

DRUGS (2)
  1. MIRALAX [Suspect]
     Active Substance: POLYETHYLENE GLYCOL 3350
     Indication: COLITIS ULCERATIVE
     Dosage: 1.5 TO 2 CAPFULS, QD
     Route: 048
     Dates: start: 2015
  2. MIRALAX [Suspect]
     Active Substance: POLYETHYLENE GLYCOL 3350
     Indication: COLITIS ULCERATIVE
     Dosage: 1.5 TO 2 CAPFULS, QD
     Route: 048
     Dates: start: 201907

REACTIONS (2)
  - Product contamination physical [None]
  - Product use in unapproved indication [Unknown]

NARRATIVE: CASE EVENT DATE: 2015
